FAERS Safety Report 6773675-X (Version None)
Quarter: 2010Q2

REPORT INFORMATION
  Report Type: 
  Country: None (occurrence: None)
  Receive Date: 20100617
  Receipt Date: 20100614
  Transmission Date: 20101027
  Serious: Yes (Hospitalization)
  Sender: FDA-Public Use
  Company Number: US-BIOGENIDEC-2009BI038570

PATIENT
  Age: 35 Year
  Sex: Female

DRUGS (2)
  1. TYSABRI [Suspect]
     Indication: MULTIPLE SCLEROSIS
     Route: 042
     Dates: start: 20071114
  2. MUSCLE RELAXERS (NOS) [Concomitant]
     Indication: PAIN

REACTIONS (7)
  - ASTHENIA [None]
  - CONTUSION [None]
  - DEPRESSION [None]
  - HALLUCINATION [None]
  - PANIC ATTACK [None]
  - PSYCHOTIC DISORDER [None]
  - VITAMIN D DEFICIENCY [None]
